FAERS Safety Report 5762417-2 (Version None)
Quarter: 2008Q2

REPORT INFORMATION
  Report Type: 
  Country: None (occurrence: None)
  Receive Date: 20080609
  Receipt Date: 20080528
  Transmission Date: 20081010
  Serious: Yes (Hospitalization)
  Sender: FDA-Public Use
  Company Number: US-WYE-H04279608

PATIENT
  Age: 65 Year
  Sex: Male
  Weight: 116 kg

DRUGS (11)
  1. EFFEXOR [Suspect]
     Dosage: UNKNOWN
  2. DECADRON [Concomitant]
     Dosage: UNKNOWN
  3. KEPPRA [Concomitant]
     Dosage: UNKNOWN
  4. BEVACIZUMAB [Suspect]
     Indication: GLIOBLASTOMA
     Dosage: 10 MG/KG
     Route: 042
     Dates: start: 20071113
  5. BEVACIZUMAB [Suspect]
     Dosage: 10 MG/KG
     Route: 042
     Dates: start: 20080318, end: 20080318
  6. SENOKOT [Concomitant]
     Dosage: UNKNOWN
  7. ONDANSETRON [Concomitant]
     Dosage: UNKNOWN
  8. TEMOZOLOMIDE [Concomitant]
     Indication: GLIOBLASTOMA
     Dosage: 75 MG/M2 QD
     Route: 048
     Dates: start: 20071113
  9. TEMOZOLOMIDE [Concomitant]
     Dosage: 100 MG/M2 QD
     Route: 048
     Dates: start: 20080318, end: 20080325
  10. LISINOPRIL [Suspect]
     Indication: HYPERTENSION
     Dosage: UNKNOWN
  11. PANTOPRAZOLE [Concomitant]
     Dosage: UNKNOWN

REACTIONS (2)
  - ACTIVATED PARTIAL THROMBOPLASTIN TIME PROLONGED [None]
  - ACUTE MYOCARDIAL INFARCTION [None]
